FAERS Safety Report 26177980 (Version 1)
Quarter: 2025Q4

REPORT INFORMATION
  Report Type: Spontaneous
  Country: EU (occurrence: EU)
  Receive Date: 20251219
  Receipt Date: 20251219
  Transmission Date: 20260118
  Serious: Yes (Hospitalization)
  Sender: CHEPLAPHARM
  Company Number: None

PATIENT
  Age: 82 Year
  Sex: Female
  Weight: 60 kg

DRUGS (8)
  1. QUETIAPINE [Suspect]
     Active Substance: QUETIAPINE
     Indication: Behaviour disorder
     Dosage: 8 AM AND 8 PM?DAILY DOSE: 50 MILLIGRAM
     Route: 048
  2. AMLODIPINE [Suspect]
     Active Substance: AMLODIPINE BESYLATE
     Indication: Hypertension
     Dosage: 8 AM?DAILY DOSE: 5 MILLIGRAM
     Route: 048
  3. PAROXETINE [Suspect]
     Active Substance: PAROXETINE
     Indication: Depression
     Dosage: 8 AM?DAILY DOSE: 20 MILLIGRAM
     Route: 048
  4. LORAZEPAM [Suspect]
     Active Substance: LORAZEPAM
     Indication: Mixed anxiety and depressive disorder
     Dosage: 8 PM?DAILY DOSE: 1 MILLIGRAM
     Route: 048
  5. FUROSEMIDE [Concomitant]
     Active Substance: FUROSEMIDE
     Dosage: 08:00 AM?DAILY DOSE: 25 MILLIGRAM
  6. DOXAZOSIN [Concomitant]
     Active Substance: DOXAZOSIN MESYLATE
     Dosage: 8 AM AND 8 PM?DAILY DOSE: 8 MILLIGRAM
  7. CANRENONE [Concomitant]
     Active Substance: CANRENONE
     Dosage: 4 PM?DAILY DOSE: 50 MILLIGRAM
  8. DOXOFYLLINE [Concomitant]
     Active Substance: DOXOFYLLINE
     Dosage: BID, 8 AM AND 8 PM?DAILY DOSE: 800 MILLIGRAM

REACTIONS (1)
  - Delirium [Recovering/Resolving]

NARRATIVE: CASE EVENT DATE: 20251001
